FAERS Safety Report 20259299 (Version 2)
Quarter: 2022Q2

REPORT INFORMATION
  Report Type: Report from Study
  Country: DE (occurrence: DE)
  Receive Date: 20211230
  Receipt Date: 20220516
  Transmission Date: 20220721
  Serious: Yes (Hospitalization)
  Sender: FDA-Public Use
  Company Number: DE-PFIZER INC-202101841400

PATIENT
  Age: 77 Year
  Sex: Female

DRUGS (13)
  1. XELJANZ [Suspect]
     Active Substance: TOFACITINIB CITRATE
     Indication: Rheumatoid arthritis
     Dosage: 10 MG
  2. UNSPECIFIED INGREDIENT [Suspect]
     Active Substance: UNSPECIFIED INGREDIENT
     Dosage: NO DOSE GIVEN
  3. PANTOZOL [Concomitant]
     Active Substance: PANTOPRAZOLE SODIUM
  4. XARELTO [Concomitant]
     Active Substance: RIVAROXABAN
  5. DIGITOXIN [Concomitant]
     Active Substance: DIGITOXIN
  6. XIPAMIDE [Concomitant]
     Active Substance: XIPAMIDE
  7. NEBIVOLOL [Concomitant]
     Active Substance: NEBIVOLOL
  8. TORSEMIDE [Concomitant]
     Active Substance: TORSEMIDE
  9. SPIRONOLACTONE [Concomitant]
     Active Substance: SPIRONOLACTONE
  10. FEBUXOSTAT [Concomitant]
     Active Substance: FEBUXOSTAT
  11. PREDNISOLONE [Concomitant]
     Active Substance: PREDNISOLONE
  12. CHOLECALCIFEROL [Concomitant]
     Active Substance: CHOLECALCIFEROL
  13. FOSAVANCE [Concomitant]
     Active Substance: ALENDRONATE SODIUM\CHOLECALCIFEROL

REACTIONS (3)
  - Cor pulmonale acute [Unknown]
  - Tricuspid valve incompetence [Unknown]
  - Mitral valve incompetence [Unknown]

NARRATIVE: CASE EVENT DATE: 20210614
